FAERS Safety Report 7620375-X (Version None)
Quarter: 2011Q3

REPORT INFORMATION
  Report Type: 
  Country: None (occurrence: None)
  Receive Date: 20110718
  Receipt Date: 20110718
  Transmission Date: 20111222
  Serious: Yes (Other)
  Sender: FDA-Public Use
  Company Number: None

PATIENT
  Age: 47 Year
  Sex: Female
  Weight: 79.378 kg

DRUGS (6)
  1. ALOXI [Interacting]
     Route: 042
  2. CYTOXAN [Interacting]
  3. FORSAPREPITANT [Interacting]
     Route: 041
  4. EMEND [Suspect]
     Indication: PROPHYLAXIS OF NAUSEA AND VOMITING
     Dosage: 150 MG IN 150 ML
     Route: 041
     Dates: start: 20110419, end: 20110531
  5. ADRIAMYCIN PFS [Interacting]
     Route: 040
  6. DECADRON [Interacting]
     Route: 017

REACTIONS (1)
  - INFUSION SITE PHLEBITIS [None]
